FAERS Safety Report 5104181-6 (Version None)
Quarter: 2006Q3

REPORT INFORMATION
  Report Type: 
  Country: None (occurrence: None)
  Receive Date: 20060911
  Receipt Date: 20060829
  Transmission Date: 20061208
  Serious: Yes (Other)
  Sender: FDA-Public Use
  Company Number: 2006-DE-04557GD

PATIENT

DRUGS (4)
  1. PREDNISONE TAB [Suspect]
     Indication: MULTIPLE MYELOMA
  2. ASPIRIN [Suspect]
     Indication: THROMBOSIS PROPHYLAXIS
     Dosage: 100 MG (ONCE DAILY)
  3. MELPHALAN (MELPHALAN) [Suspect]
     Indication: MULTIPLE MYELOMA
  4. LENALIDOMIDE (ANTINEOPLASTIC AND IMMUNODULATING AGENTS) [Suspect]
     Indication: MULTIPLE MYELOMA
     Dosage: 5-10 MG

REACTIONS (2)
  - PULMONARY EMBOLISM [None]
  - VENOUS THROMBOSIS [None]
